FAERS Safety Report 9869061 (Version 1)
Quarter: 2014Q1

REPORT INFORMATION
  Report Type: Spontaneous
  Country: US (occurrence: US)
  Receive Date: 20140205
  Receipt Date: 20140205
  Transmission Date: 20141002
  Serious: No
  Sender: FDA-Public Use
  Company Number: US-BIOGENIDEC-2009BI026352

PATIENT
  Age: 55 Year
  Sex: Female

DRUGS (1)
  1. TYSABRI [Suspect]
     Indication: MULTIPLE SCLEROSIS
     Route: 042
     Dates: start: 20070702, end: 20080227

REACTIONS (5)
  - Cognitive disorder [Recovered/Resolved]
  - Personality disorder [Recovered/Resolved]
  - Adverse drug reaction [Recovered/Resolved]
  - Road traffic accident [Recovered/Resolved]
  - Malaise [Not Recovered/Not Resolved]
